FAERS Safety Report 12770775 (Version 1)
Quarter: 2016Q3

REPORT INFORMATION
  Report Type: Report from Study
  Country: US (occurrence: US)
  Receive Date: 20160922
  Receipt Date: 20160922
  Transmission Date: 20161109
  Serious: Yes (Other)
  Sender: FDA-Public Use
  Company Number: US-GILEAD-2016-0233936

PATIENT
  Age: 35 Year
  Sex: Male

DRUGS (2)
  1. ADCIRCA [Concomitant]
     Active Substance: TADALAFIL
  2. AMBRISENTAN [Suspect]
     Active Substance: AMBRISENTAN
     Indication: PRODUCT USED FOR UNKNOWN INDICATION
     Dosage: 10 MG, QD
     Route: 065
     Dates: start: 20160411

REACTIONS (8)
  - Exercise tolerance decreased [Unknown]
  - Dyspnoea [Unknown]
  - Middle insomnia [Unknown]
  - Fatigue [Unknown]
  - Syncope [Unknown]
  - Cough [Unknown]
  - Face oedema [Unknown]
  - Dizziness [Unknown]

NARRATIVE: CASE EVENT DATE: 201608
